FAERS Safety Report 21271901 (Version 1)
Quarter: 2022Q3

REPORT INFORMATION
  Report Type: Spontaneous
  Country: US (occurrence: US)
  Receive Date: 20220830
  Receipt Date: 20220830
  Transmission Date: 20221026
  Serious: Yes (Other)
  Sender: FDA-Public Use
  Company Number: US-AMERICAN REGENT INC-2021003310

PATIENT
  Age: 69 Year
  Sex: Male

DRUGS (2)
  1. FERRIC CARBOXYMALTOSE [Suspect]
     Active Substance: FERRIC CARBOXYMALTOSE
     Indication: Microcytic anaemia
     Dosage: UNK, SINGLE
     Route: 042
     Dates: start: 20211214, end: 20211214
  2. FERRIC CARBOXYMALTOSE [Suspect]
     Active Substance: FERRIC CARBOXYMALTOSE
     Dosage: UNK, SINGLE
     Route: 042
     Dates: start: 20211221, end: 20211221

REACTIONS (4)
  - Systolic hypertension [Unknown]
  - Nausea [Unknown]
  - Headache [Not Recovered/Not Resolved]
  - Product use in unapproved indication [Unknown]

NARRATIVE: CASE EVENT DATE: 20211214
